FAERS Safety Report 23661195 (Version 3)
Quarter: 2025Q4

REPORT INFORMATION
  Report Type: Spontaneous
  Country: PA (occurrence: PA)
  Receive Date: 20240322
  Receipt Date: 20251015
  Transmission Date: 20260119
  Serious: Yes (Other)
  Sender: SANDOZ
  Company Number: PA-002147023-NVSC2020PA296945

PATIENT
  Age: 69 Year
  Sex: Female
  Weight: 37 kg

DRUGS (21)
  1. ANASTROZOLE [Suspect]
     Active Substance: ANASTROZOLE
     Dosage: 1 MG, QD
     Route: 048
  2. ANASTROZOLE [Suspect]
     Active Substance: ANASTROZOLE
     Indication: Breast cancer metastatic
     Dosage: 1 DOSAGE FORM, QD
     Route: 065
  3. ANASTROZOLE [Suspect]
     Active Substance: ANASTROZOLE
     Dosage: 1 DOSAGE FORM, QD
     Route: 065
     Dates: start: 202010
  4. ANASTROZOLE [Suspect]
     Active Substance: ANASTROZOLE
     Indication: Metastases to bone
     Dosage: UNK UNK, QD
     Route: 065
  5. FULVESTRANT [Suspect]
     Active Substance: FULVESTRANT
     Indication: Product used for unknown indication
     Dosage: UNK
     Route: 065
  6. GABAPENTIN [Suspect]
     Active Substance: GABAPENTIN
     Dosage: 2 DOSAGE FORM, QD
     Route: 065
  7. GABAPENTIN [Suspect]
     Active Substance: GABAPENTIN
     Indication: Pain
     Dosage: UNK UNK, QD
     Route: 065
  8. GABAPENTIN [Suspect]
     Active Substance: GABAPENTIN
     Dosage: UNK, QD
     Route: 048
  9. KISQALI [Suspect]
     Active Substance: RIBOCICLIB SUCCINATE
     Dosage: 400 MG, QD
     Route: 048
     Dates: start: 20201031
  10. KISQALI [Suspect]
     Active Substance: RIBOCICLIB SUCCINATE
     Dosage: 400 MG, QD
     Route: 048
     Dates: start: 2023
  11. KISQALI [Suspect]
     Active Substance: RIBOCICLIB SUCCINATE
     Dosage: 400 MG, (2 DOSAGE FORM)
     Route: 065
  12. KISQALI [Suspect]
     Active Substance: RIBOCICLIB SUCCINATE
     Indication: Breast cancer metastatic
     Dosage: 600 MG, QD
     Route: 048
     Dates: start: 20201027
  13. KISQALI [Suspect]
     Active Substance: RIBOCICLIB SUCCINATE
     Dosage: 600 MG, QD
     Route: 048
     Dates: start: 20201028
  14. KISQALI [Suspect]
     Active Substance: RIBOCICLIB SUCCINATE
     Dosage: 600 MG, QD
     Route: 048
     Dates: start: 20201031
  15. KISQALI [Suspect]
     Active Substance: RIBOCICLIB SUCCINATE
     Dosage: 600 MG, QD
     Route: 065
     Dates: start: 202011
  16. KISQALI [Suspect]
     Active Substance: RIBOCICLIB SUCCINATE
     Dosage: 600 MG, QD (3 DOSAGE FORM)
     Route: 048
  17. MORPHINE [Suspect]
     Active Substance: MORPHINE
     Indication: Pain
     Dosage: UNK
     Route: 065
  18. TRAMADOL [Suspect]
     Active Substance: TRAMADOL
     Indication: Pain
     Dosage: 2 DOSAGE FORM, QD
     Route: 065
     Dates: start: 2009
  19. Cal mag d [Concomitant]
     Indication: Product used for unknown indication
     Dosage: UNK
     Route: 065
  20. FULVESTRANT [Concomitant]
     Active Substance: FULVESTRANT
     Indication: Product used for unknown indication
     Route: 065
  21. LIDOCAINE [Concomitant]
     Active Substance: LIDOCAINE
     Indication: Product used for unknown indication
     Dosage: UNK (PATCHES)
     Route: 065

REACTIONS (65)
  - Angina pectoris [Unknown]
  - Arrhythmia [Unknown]
  - Joint injury [Not Recovered/Not Resolved]
  - Limb discomfort [Not Recovered/Not Resolved]
  - Gait disturbance [Not Recovered/Not Resolved]
  - Metastases to lung [Unknown]
  - Pulmonary pain [Not Recovered/Not Resolved]
  - Metastases to bone [Unknown]
  - Dyspnoea [Unknown]
  - Metastasis [Unknown]
  - Metastases to spine [Unknown]
  - Muscle spasms [Recovering/Resolving]
  - Hypersensitivity [Recovering/Resolving]
  - Dactylitis [Recovering/Resolving]
  - Plantar fasciitis [Recovering/Resolving]
  - Illness [Recovering/Resolving]
  - Gait inability [Recovering/Resolving]
  - Insomnia [Recovering/Resolving]
  - Headache [Recovered/Resolved]
  - Vomiting [Recovered/Resolved]
  - Nausea [Recovered/Resolved]
  - Dizziness [Recovered/Resolved]
  - Decreased appetite [Recovered/Resolved]
  - Tachycardia [Unknown]
  - Musculoskeletal chest pain [Unknown]
  - Hepatic cyst [Unknown]
  - Blood pressure abnormal [Unknown]
  - Glossodynia [Unknown]
  - Infective glossitis [Unknown]
  - Feeding disorder [Unknown]
  - Skin discolouration [Not Recovered/Not Resolved]
  - Skin disorder [Unknown]
  - Breast pain [Not Recovered/Not Resolved]
  - Decreased immune responsiveness [Unknown]
  - Bone disorder [Unknown]
  - Pharyngitis [Unknown]
  - Thermal burn [Unknown]
  - Dysphonia [Unknown]
  - Renal pain [Unknown]
  - Biliary colic [Not Recovered/Not Resolved]
  - Ligament sprain [Not Recovered/Not Resolved]
  - Spinal pain [Unknown]
  - Fall [Unknown]
  - Restlessness [Unknown]
  - COVID-19 [Not Recovered/Not Resolved]
  - Lung disorder [Unknown]
  - Discomfort [Unknown]
  - Productive cough [Unknown]
  - Abdominal discomfort [Recovering/Resolving]
  - Chest pain [Unknown]
  - Nail disorder [Not Recovered/Not Resolved]
  - Constipation [Unknown]
  - Oropharyngeal pain [Unknown]
  - Malaise [Not Recovered/Not Resolved]
  - Cough [Not Recovered/Not Resolved]
  - Abdominal pain upper [Unknown]
  - Injection site pain [Unknown]
  - Pain [Unknown]
  - Bone pain [Unknown]
  - Musculoskeletal stiffness [Unknown]
  - Arthralgia [Unknown]
  - Alopecia [Not Recovered/Not Resolved]
  - Dizziness [Unknown]
  - Headache [Unknown]
  - Drug ineffective [Unknown]

NARRATIVE: CASE EVENT DATE: 20201028
